FAERS Safety Report 12720886 (Version 1)
Quarter: 2016Q3

REPORT INFORMATION
  Report Type: Spontaneous
  Country: FR (occurrence: FR)
  Receive Date: 20160907
  Receipt Date: 20160907
  Transmission Date: 20161109
  Serious: Yes (Hospitalization)
  Sender: FDA-Public Use
  Company Number: FR-SA-2016SA160048

PATIENT
  Sex: Male

DRUGS (5)
  1. MEROPENEM TRIHYDRATE [Suspect]
     Active Substance: MEROPENEM
     Indication: MENINGITIS
     Route: 042
     Dates: start: 20160803, end: 20160817
  2. VANCOMYCIN HYDROCHLORIDE. [Suspect]
     Active Substance: VANCOMYCIN HYDROCHLORIDE
     Indication: MENINGITIS
     Route: 042
     Dates: start: 20160803, end: 20160817
  3. INEXIUM [Suspect]
     Active Substance: ESOMEPRAZOLE
     Route: 048
     Dates: start: 20160728, end: 20160817
  4. LOVENOX [Suspect]
     Active Substance: ENOXAPARIN SODIUM
     Indication: THROMBOSIS PROPHYLAXIS
     Route: 058
     Dates: start: 20160728, end: 20160817
  5. CEFTRIAXONE. [Concomitant]
     Active Substance: CEFTRIAXONE
     Indication: MENINGITIS
     Dosage: 1 INJECTION ONCE
     Route: 042
     Dates: start: 20160803, end: 20160803

REACTIONS (4)
  - Rash macular [Unknown]
  - Erythema [Unknown]
  - Neutropenia [Recovered/Resolved]
  - Eosinophilia [Recovered/Resolved]

NARRATIVE: CASE EVENT DATE: 20160812
